FAERS Safety Report 24249812 (Version 1)
Quarter: 2024Q3

REPORT INFORMATION
  Report Type: Spontaneous
  Country: US (occurrence: None)
  Receive Date: 20240823
  Receipt Date: 20240823
  Transmission Date: 20241017
  Serious: Yes (Disabling)
  Sender: Public
  Company Number: None

PATIENT
  Age: 34 Year
  Sex: Female
  Weight: 58.5 kg

DRUGS (11)
  1. REVIA [Suspect]
     Active Substance: NALTREXONE HYDROCHLORIDE
     Indication: Dermatillomania
     Dosage: OTHER QUANTITY : 1 TABLET(S);?
     Route: 048
     Dates: start: 20240820, end: 20240820
  2. trintellix 15mg [Concomitant]
  3. HEMEVITE [Concomitant]
  4. DRENAMIN [Concomitant]
  5. antrone [Concomitant]
  6. SYMPLEX [Concomitant]
  7. HYPOTHALAMUS [Concomitant]
     Active Substance: ORYCTOLAGUS CUNICULUS HYPOTHALAMUS
  8. NEUROTROPHIN [Concomitant]
  9. DIETARY SUPPLEMENT [Concomitant]
     Active Substance: DIETARY SUPPLEMENT
  10. MEGA MULTI MINERAL FROM SOLARAY [Concomitant]
  11. DERMATOL (DAMP) [Concomitant]

REACTIONS (4)
  - Fatigue [None]
  - Nausea [None]
  - Vomiting [None]
  - Feeding disorder [None]

NARRATIVE: CASE EVENT DATE: 20240820
